FAERS Safety Report 13718210 (Version 2)
Quarter: 2018Q3

REPORT INFORMATION
  Report Type: Spontaneous
  Country: US (occurrence: US)
  Receive Date: 20170705
  Receipt Date: 20180702
  Transmission Date: 20181010
  Serious: Yes (Other)
  Sender: FDA-Public Use
  Company Number: US-IMPAX LABORATORIES, INC-2017-IPXL-01740

PATIENT
  Age: 76 Year
  Sex: Male
  Weight: 104 kg

DRUGS (6)
  1. NAMZARIC [Concomitant]
     Active Substance: DONEPEZIL HYDROCHLORIDE\MEMANTINE HYDROCHLORIDE
     Dosage: 21/10 MG FOR THE THIRD WEEK
     Route: 048
  2. RYTARY [Suspect]
     Active Substance: CARBIDOPA\LEVODOPA
     Indication: PARKINSON^S DISEASE
     Dosage: 36.25/145 MG, 3 CAPSULES, 5 TIMES A DAY
     Route: 048
     Dates: start: 20170503
  3. CARBIDOPA?LEVODOPA ER [Suspect]
     Active Substance: CARBIDOPA\LEVODOPA
     Indication: PARKINSON^S DISEASE
     Dosage: UNK
     Route: 065
  4. NAMZARIC [Concomitant]
     Active Substance: DONEPEZIL HYDROCHLORIDE\MEMANTINE HYDROCHLORIDE
     Dosage: 28/10 MG SINCE THE LAST WEEK
     Route: 048
  5. NAMZARIC [Concomitant]
     Active Substance: DONEPEZIL HYDROCHLORIDE\MEMANTINE HYDROCHLORIDE
     Dosage: 14/10 MG FOR THE NEXT WEEK
     Route: 048
  6. NAMZARIC [Concomitant]
     Active Substance: DONEPEZIL HYDROCHLORIDE\MEMANTINE HYDROCHLORIDE
     Indication: PARKINSON^S DISEASE
     Dosage: 7 /10 MG, FOR THE ?RST WEEK
     Route: 048
     Dates: start: 201705

REACTIONS (5)
  - Pre-existing condition improved [Unknown]
  - Freezing phenomenon [Recovering/Resolving]
  - Joint dislocation [Unknown]
  - Gait disturbance [Recovering/Resolving]
  - Fall [Unknown]

NARRATIVE: CASE EVENT DATE: 201605
